FAERS Safety Report 9260977 (Version 1)
Quarter: 2013Q2

REPORT INFORMATION
  Report Type: Spontaneous
  Country: US (occurrence: US)
  Receive Date: 20130429
  Receipt Date: 20130429
  Transmission Date: 20140414
  Serious: No
  Sender: FDA-Public Use
  Company Number: US-AMGEN-USASP2012016595

PATIENT
  Age: 65 Year
  Sex: Male

DRUGS (2)
  1. SENSIPAR [Suspect]
     Indication: RENAL FAILURE CHRONIC
     Dosage: 60 MG, QD
     Dates: start: 20120215
  2. SENSIPAR [Suspect]
     Dosage: 30 MG, QD
     Dates: start: 201109

REACTIONS (3)
  - Drug effect decreased [Unknown]
  - Blood parathyroid hormone abnormal [Recovered/Resolved]
  - Wrong technique in drug usage process [Not Recovered/Not Resolved]
